FAERS Safety Report 20082676 (Version 1)
Quarter: 2021Q4

REPORT INFORMATION
  Report Type: Spontaneous
  Country: US (occurrence: US)
  Receive Date: 20211117
  Receipt Date: 20211117
  Transmission Date: 20220304
  Serious: No
  Sender: FDA-Public Use
  Company Number: US-PFIZER INC-202101521375

PATIENT
  Age: 49 Year
  Sex: Female
  Weight: 181.44 kg

DRUGS (1)
  1. CYTOMEL [Suspect]
     Active Substance: LIOTHYRONINE SODIUM
     Indication: Tri-iodothyronine abnormal
     Dosage: 3 OF 5 MICROGRAM EQUIVALENT TO 15 MICROGRAMS DAILY
     Dates: start: 2017

REACTIONS (6)
  - Product colour issue [Unknown]
  - Hypoaesthesia [Unknown]
  - Paraesthesia [Unknown]
  - Cold-stimulus headache [Unknown]
  - Feeling abnormal [Unknown]
  - Intentional product misuse [Unknown]

NARRATIVE: CASE EVENT DATE: 20211102
